FAERS Safety Report 24838833 (Version 1)
Quarter: 2025Q1

REPORT INFORMATION
  Report Type: Spontaneous
  Country: US (occurrence: US)
  Receive Date: 20250114
  Receipt Date: 20250114
  Transmission Date: 20250409
  Serious: No
  Sender: ROCHE
  Company Number: US-ROCHE-10000173496

PATIENT
  Sex: Female

DRUGS (1)
  1. XOLAIR [Suspect]
     Active Substance: OMALIZUMAB
     Indication: Hypersensitivity
     Dosage: ONGOING
     Route: 058
     Dates: start: 202211

REACTIONS (2)
  - Drug ineffective [Unknown]
  - Condition aggravated [Unknown]
